FAERS Safety Report 8348319-6 (Version None)
Quarter: 2012Q2

REPORT INFORMATION
  Report Type: 
  Country: None (occurrence: None)
  Receive Date: 20120509
  Receipt Date: 20120424
  Transmission Date: 20120825
  Serious: Yes (Death, Hospitalization)
  Sender: FDA-Public Use
  Company Number: US-BAXTER-2012BAX003754

PATIENT
  Sex: Female

DRUGS (2)
  1. DIANEAL [Suspect]
     Indication: PERITONEAL DIALYSIS
     Route: 033
     Dates: end: 20120424
  2. DIANEAL [Suspect]
     Route: 033
     Dates: end: 20120424

REACTIONS (3)
  - BLOOD POTASSIUM DECREASED [None]
  - HYPOTENSION [None]
  - DEATH [None]
